FAERS Safety Report 5529918-3 (Version None)
Quarter: 2007Q4

REPORT INFORMATION
  Report Type: 
  Country: None (occurrence: None)
  Receive Date: 20071129
  Receipt Date: 20071122
  Transmission Date: 20080405
  Serious: Yes (Other)
  Sender: FDA-Public Use
  Company Number: BR-BOEHRINGER INGELHEIM PHARMACEUTICALS, INC.-2007-BP-24963BR

PATIENT
  Sex: Female

DRUGS (2)
  1. ATENSINA [Suspect]
     Indication: HYPERTENSION
     Route: 048
     Dates: start: 20060101
  2. A MEDICATION (NON-SPECIFIED SUBSTANCE) [Concomitant]
     Indication: ANXIETY

REACTIONS (2)
  - HEADACHE [None]
  - HYPERTENSION [None]
